FAERS Safety Report 14816916 (Version 1)
Quarter: 2018Q2

REPORT INFORMATION
  Report Type: Spontaneous
  Country: JP (occurrence: JP)
  Receive Date: 20180426
  Receipt Date: 20180426
  Transmission Date: 20180711
  Serious: Yes (Other)
  Sender: FDA-Public Use
  Company Number: JP-PFIZER INC-2018164358

PATIENT
  Age: 28 Year
  Sex: Male

DRUGS (1)
  1. INLYTA [Suspect]
     Active Substance: AXITINIB
     Dosage: 14 MG, DAILY
     Route: 048
     Dates: start: 20160824, end: 201702

REACTIONS (5)
  - Renal impairment [Recovering/Resolving]
  - Decreased appetite [Unknown]
  - Neoplasm progression [Unknown]
  - Epistaxis [Unknown]
  - Diarrhoea [Unknown]

NARRATIVE: CASE EVENT DATE: 20170215
